FAERS Safety Report 5207128-7 (Version None)
Quarter: 2007Q1

REPORT INFORMATION
  Report Type: 
  Country: None (occurrence: None)
  Receive Date: 20070110
  Receipt Date: 20061226
  Transmission Date: 20070707
  Serious: Yes (Other)
  Sender: FDA-Public Use
  Company Number: 06-001513

PATIENT
  Age: 19 Year
  Sex: Female

DRUGS (1)
  1. PYRIDIUM (PHENAZOPYRIDINE HYDROCHLORIDE) TABLET, 100MG [Suspect]
     Indication: URINARY TRACT DISORDER
     Dosage: SEE IMAGE
     Route: 048

REACTIONS (10)
  - BLOOD BILIRUBIN INCREASED [None]
  - CYANOSIS [None]
  - DRUG TOXICITY [None]
  - INTENTIONAL OVERDOSE [None]
  - METHAEMOGLOBINAEMIA [None]
  - PERIORBITAL OEDEMA [None]
  - RENAL FAILURE ACUTE [None]
  - RHABDOMYOLYSIS [None]
  - SUICIDE ATTEMPT [None]
  - WHITE BLOOD CELL COUNT INCREASED [None]
